FAERS Safety Report 5511546-7 (Version None)
Quarter: 2007Q4

REPORT INFORMATION
  Report Type: 
  Country: None (occurrence: None)
  Receive Date: 20071109
  Receipt Date: 20071102
  Transmission Date: 20080405
  Serious: Yes (Other)
  Sender: FDA-Public Use
  Company Number: GB-MERCK-0711USA01257

PATIENT
  Age: 62 Year
  Sex: Male
  Weight: 146 kg

DRUGS (4)
  1. PRINIVIL [Suspect]
     Indication: HYPERTENSION
     Route: 048
     Dates: start: 20051203, end: 20051204
  2. PRINIVIL [Suspect]
     Route: 048
     Dates: start: 20020101
  3. ALLOPURINOL [Concomitant]
     Indication: GOUT
     Route: 048
     Dates: start: 20030701, end: 20031201
  4. DOXAZOSIN MESYLATE [Concomitant]
     Indication: HYPERTENSION
     Route: 048
     Dates: start: 20050907, end: 20051201

REACTIONS (4)
  - BLISTER [None]
  - FACE OEDEMA [None]
  - OEDEMA PERIPHERAL [None]
  - RASH GENERALISED [None]
